FAERS Safety Report 8826941 (Version 1)
Quarter: 2012Q4

REPORT INFORMATION
  Report Type: Report from Study
  Country: JP (occurrence: JP)
  Receive Date: 20121008
  Receipt Date: 20121008
  Transmission Date: 20130627
  Serious: Yes (Other)
  Sender: FDA-Public Use
  Company Number: JP-009507513-2012SP027241

PATIENT
  Age: 51 Year
  Sex: Female
  Weight: 51 kg

DRUGS (14)
  1. PEGINTRON [Suspect]
     Indication: HEPATITIS C
     Dosage: 1.5 Microgram per kilogram, QW
     Route: 058
     Dates: start: 20120306, end: 20120312
  2. PEGINTRON [Suspect]
     Dosage: 0.8 Microgram per kilogram, QW
     Route: 058
     Dates: start: 20120321, end: 20120321
  3. PEGINTRON [Suspect]
     Dosage: 1.5 Microgram per kilogram, QW
     Route: 058
     Dates: start: 20120326
  4. REBETOL [Suspect]
     Indication: HEPATITIS C
     Dosage: 600 mg, QD
     Route: 048
     Dates: start: 20120306, end: 20120325
  5. REBETOL [Suspect]
     Dosage: 200 mg, QD
     Route: 048
     Dates: start: 20120326
  6. REBETOL [Suspect]
     Dosage: 400 mg, QD
     Route: 048
     Dates: start: 20120618, end: 20120813
  7. TELAVIC [Suspect]
     Indication: HEPATITIS C
     Dosage: 1500 mg, QD
     Route: 048
     Dates: start: 20120306, end: 20120528
  8. SODIUM FERROUS CITRATE [Concomitant]
     Indication: IRON DEFICIENCY ANAEMIA
     Dosage: 100 mg, qd; FORMULATION : POR
     Route: 048
  9. LIVALO [Concomitant]
     Indication: HYPERLIPIDAEMIA
     Dosage: 2 mg, qd; Formulation: POR
     Route: 048
  10. EPADEL [Concomitant]
     Indication: HYPERLIPIDAEMIA
     Dosage: 1800 mg, qd; Formulation: POR
     Route: 048
  11. CLARITIN REDITABS [Concomitant]
     Indication: PROPHYLAXIS
     Dosage: 10 mg, QD
     Route: 048
  12. FAMOTIDINE [Concomitant]
     Indication: GASTRIC ULCER
     Dosage: 20 mg, qd; Formulation: POR
     Route: 048
  13. ETIZOLAM [Concomitant]
     Indication: INSOMNIA
     Dosage: 1 mg, qd; Formulation: POR
     Route: 048
  14. MAGLAX (MAGNESIUM OXIDE) [Concomitant]
     Indication: CONSTIPATION
     Dosage: 990 mg, qd; Formulation: POR
     Route: 048

REACTIONS (3)
  - Anaemia [Not Recovered/Not Resolved]
  - Anaemia [Not Recovered/Not Resolved]
  - Anaemia [Not Recovered/Not Resolved]
